FAERS Safety Report 4853624-1 (Version None)
Quarter: 2005Q4

REPORT INFORMATION
  Report Type: 
  Country: None (occurrence: None)
  Receive Date: 20051125
  Receipt Date: 20050411
  Transmission Date: 20060501
  Serious: Yes (Other)
  Sender: FDA-Public Use
  Company Number: US-JNJFOC-20050402798

PATIENT
  Sex: Male

DRUGS (1)
  1. LEVAQUIN [Suspect]
     Indication: PNEUMONIA
     Dosage: 750 MG, ORAL
     Route: 048

REACTIONS (4)
  - CONVULSION [None]
  - FALL [None]
  - HUMERUS FRACTURE [None]
  - HYPERSENSITIVITY [None]
